FAERS Safety Report 15059574 (Version 2)
Quarter: 2018Q3

REPORT INFORMATION
  Report Type: Spontaneous
  Country: US (occurrence: US)
  Receive Date: 20180625
  Receipt Date: 20180711
  Transmission Date: 20181010
  Serious: No
  Sender: FDA-Public Use
  Company Number: US-SA-2018SA143555

PATIENT
  Age: 55 Year
  Sex: Female

DRUGS (1)
  1. TOUJEO [Suspect]
     Active Substance: INSULIN GLARGINE
     Indication: TYPE 2 DIABETES MELLITUS
     Dosage: 60 U, QD
     Dates: start: 201804

REACTIONS (5)
  - Wrong technique in product usage process [Unknown]
  - Blood glucose fluctuation [Unknown]
  - Dysphonia [Unknown]
  - Blood glucose decreased [Unknown]
  - Contusion [Unknown]
